FAERS Safety Report 8016812-1 (Version None)
Quarter: 2012Q1

REPORT INFORMATION
  Report Type: 
  Country: None (occurrence: None)
  Receive Date: 20120102
  Receipt Date: 20111226
  Transmission Date: 20120608
  Serious: Yes (Hospitalization)
  Sender: FDA-Public Use
  Company Number: JP-BRISTOL-MYERS SQUIBB COMPANY-16214413

PATIENT
  Age: 33 Year
  Sex: Female

DRUGS (16)
  1. FOLIC ACID [Concomitant]
     Indication: PROPHYLAXIS
  2. MAGMITT [Concomitant]
     Indication: CONSTIPATION PROPHYLAXIS
  3. METHOTREXATE [Concomitant]
     Indication: RHEUMATOID ARTHRITIS
  4. GLAKAY [Concomitant]
  5. ACTONEL [Concomitant]
  6. MEDROL [Concomitant]
     Indication: RHEUMATOID ARTHRITIS
     Route: 048
  7. INFLIXIMAB [Concomitant]
  8. TIZANIDINE HCL [Concomitant]
     Indication: MUSCULOSKELETAL STIFFNESS
  9. ISONIAZID [Concomitant]
     Indication: TUBERCULOSIS
  10. RIMATIL [Concomitant]
     Indication: RHEUMATOID ARTHRITIS
  11. LANSOPRAZOLE [Concomitant]
  12. ORENCIA [Suspect]
     Indication: RHEUMATOID ARTHRITIS
     Dosage: LAST DOSE ON 5OCT11,NO OF INF:8 ALSO TAKEN ON 4,20APR,6MAY,2JUN,4JUL,3AUG,2SEP11
     Route: 041
     Dates: start: 20110404, end: 20110902
  13. ADOFEED [Concomitant]
     Indication: RHEUMATOID ARTHRITIS
  14. KETOPROFEN [Concomitant]
     Indication: RHEUMATOID ARTHRITIS
  15. LOXONIN [Concomitant]
     Indication: RHEUMATOID ARTHRITIS
  16. MUCOSTA [Concomitant]
     Indication: GASTRITIS PROPHYLAXIS

REACTIONS (1)
  - SUBARACHNOID HAEMORRHAGE [None]
